FAERS Safety Report 25842498 (Version 2)
Quarter: 2025Q4

REPORT INFORMATION
  Report Type: Spontaneous
  Country: US (occurrence: US)
  Receive Date: 20250924
  Receipt Date: 20251214
  Transmission Date: 20260117
  Serious: Yes (Hospitalization, Other)
  Sender: TAKEDA
  Company Number: US-TAKEDA-2025TUS081838

PATIENT
  Age: 39 Year
  Sex: Male
  Weight: 93.878 kg

DRUGS (7)
  1. ENTYVIO [Suspect]
     Active Substance: VEDOLIZUMAB
     Indication: Colitis ulcerative
     Dosage: 300 MILLIGRAM
  2. MESALAMINE [Suspect]
     Active Substance: MESALAMINE
     Indication: Colitis ulcerative
     Dosage: 1.2 GRAM, QD
     Dates: start: 201609
  3. PREDNISONE [Suspect]
     Active Substance: PREDNISONE
     Indication: Colitis ulcerative
     Dosage: 30 MILLIGRAM, QD
     Dates: start: 202505
  4. PREDNISONE [Suspect]
     Active Substance: PREDNISONE
     Indication: Arthropathy
  5. AZATHIOPRINE [Suspect]
     Active Substance: AZATHIOPRINE
     Indication: Arthropathy
     Dosage: 200 MILLIGRAM, QD
     Dates: start: 2008, end: 202508
  6. AZATHIOPRINE [Suspect]
     Active Substance: AZATHIOPRINE
     Indication: Colitis ulcerative
  7. VITAMIN D3 [Concomitant]
     Active Substance: CHOLECALCIFEROL
     Indication: Vitamin D deficiency
     Dosage: 2000 INTERNATIONAL UNIT, QD
     Dates: start: 202507

REACTIONS (4)
  - Gastrointestinal lymphoma [Not Recovered/Not Resolved]
  - Epstein-Barr virus associated lymphoproliferative disorder [Unknown]
  - Colitis ulcerative [Unknown]
  - Arthritis enteropathic [Unknown]
